FAERS Safety Report 4895225-5 (Version None)
Quarter: 2006Q1

REPORT INFORMATION
  Report Type: 
  Country: None (occurrence: None)
  Receive Date: 20060130
  Receipt Date: 20060104
  Transmission Date: 20060701
  Serious: Yes (Death, Hospitalization, Other)
  Sender: FDA-Public Use
  Company Number: US-GLAXOSMITHKLINE-A0587749A

PATIENT
  Age: 15 Year
  Sex: Female
  Weight: 62.7 kg

DRUGS (3)
  1. LAMICTAL [Suspect]
     Route: 048
     Dates: start: 20051019, end: 20051111
  2. ZANTAC [Concomitant]
  3. TYLENOL-500 [Concomitant]

REACTIONS (10)
  - BRAIN OEDEMA [None]
  - FEELING HOT [None]
  - GASTROENTERITIS VIRAL [None]
  - HEPATIC FAILURE [None]
  - LOSS OF CONSCIOUSNESS [None]
  - LYMPHOCYTE COUNT INCREASED [None]
  - RASH [None]
  - REYE'S SYNDROME [None]
  - VIRAL INFECTION [None]
  - VOMITING [None]
